FAERS Safety Report 5044559-2 (Version None)
Quarter: 2006Q2

REPORT INFORMATION
  Report Type: 
  Country: None (occurrence: None)
  Receive Date: 20060629
  Receipt Date: 20060619
  Transmission Date: 20061013
  Serious: Yes (Other)
  Sender: FDA-Public Use
  Company Number: 2006077706

PATIENT
  Sex: Female

DRUGS (1)
  1. ZOLOFT [Suspect]
     Indication: DEPRESSION
     Dosage: 100 MG (100 MG, 1 IN 1D), ORAL
     Route: 048
     Dates: start: 20060501

REACTIONS (3)
  - CONDITION AGGRAVATED [None]
  - DEPRESSED MOOD [None]
  - INTENTIONAL OVERDOSE [None]
